FAERS Safety Report 4268853-8 (Version None)
Quarter: 2004Q1

REPORT INFORMATION
  Report Type: 
  Country: None (occurrence: None)
  Receive Date: 20040113
  Receipt Date: 20031027
  Transmission Date: 20041129
  Serious: Yes (Other)
  Sender: FDA-Public Use
  Company Number: 200319497US

PATIENT
  Age: 59 Year
  Sex: Male
  Weight: 68.2 kg

DRUGS (9)
  1. ARAVA [Suspect]
     Indication: RHEUMATOID ARTHRITIS
     Dates: start: 20020208, end: 20030806
  2. METHOTREXATE [Concomitant]
     Dosage: DOSE: UNK
  3. HYDROCHLOROTHIAZIDE [Concomitant]
     Dosage: DOSE: UNK
  4. IBUPROFEN [Concomitant]
  5. HYDROCODONE BITARTRATE [Concomitant]
     Dosage: DOSE: UNK
  6. LISINOPRIL [Concomitant]
     Dosage: DOSE: UNK
  7. NIACIN [Concomitant]
  8. LESCOL [Concomitant]
     Dosage: DOSE: UNK
     Dates: end: 20030201
  9. PREDNISONE [Concomitant]
     Dates: start: 20030806

REACTIONS (7)
  - ALANINE AMINOTRANSFERASE INCREASED [None]
  - ASPARTATE AMINOTRANSFERASE INCREASED [None]
  - BLOOD CREATINE PHOSPHOKINASE INCREASED [None]
  - MUSCLE CRAMP [None]
  - MYOSITIS [None]
  - PAIN IN EXTREMITY [None]
  - STOMATITIS [None]
